FAERS Safety Report 8405125 (Version 2)
Quarter: 2014Q3

REPORT INFORMATION
  Report Type: Spontaneous
  Country: US (occurrence: US)
  Receive Date: 20120214
  Receipt Date: 20140716
  Transmission Date: 20150326
  Serious: Yes (Hospitalization)
  Sender: FDA-Public Use
  Company Number: US-GLAXOSMITHKLINE-B0718204A

PATIENT
  Sex: Male
  Weight: 107.7 kg

DRUGS (2)
  1. AVANDAMET [Suspect]
     Active Substance: METFORMIN HYDROCHLORIDE\ROSIGLITAZONE MALEATE
     Indication: DIABETES MELLITUS
     Route: 048
     Dates: start: 2003, end: 200407
  2. AVANDIA [Suspect]
     Active Substance: ROSIGLITAZONE MALEATE
     Indication: DIABETES MELLITUS
     Dosage: 4MG PER DAY
     Route: 048
     Dates: start: 2006, end: 20091010

REACTIONS (5)
  - Cardiomyopathy [Unknown]
  - Cardiogenic shock [Unknown]
  - Coronary artery disease [Not Recovered/Not Resolved]
  - Pleural effusion [Unknown]
  - Pulmonary oedema [Unknown]
